FAERS Safety Report 8106407-3 (Version None)
Quarter: 2012Q1

REPORT INFORMATION
  Report Type: 
  Country: None (occurrence: None)
  Receive Date: 20120202
  Receipt Date: 20120131
  Transmission Date: 20120608
  Serious: Yes (Hospitalization, Other)
  Sender: FDA-Public Use
  Company Number: CH-BAYER-2012-009503

PATIENT
  Age: 68 Year
  Sex: Female
  Weight: 52 kg

DRUGS (2)
  1. NEXAVAR [Suspect]
     Indication: MALIGNANT MELANOMA
     Dosage: DAILY DOSE 400 MG
     Route: 048
     Dates: start: 20120119, end: 20120121
  2. NEXAVAR [Suspect]
     Dosage: DAILY DOSE: 800 MG
     Dates: start: 20120121, end: 20120129

REACTIONS (8)
  - PALMAR-PLANTAR ERYTHRODYSAESTHESIA SYNDROME [None]
  - CHILLS [None]
  - PAIN [None]
  - PYREXIA [None]
  - RASH GENERALISED [None]
  - STOMATITIS [None]
  - ERYTHEMA [None]
  - HYPERKERATOSIS [None]
